FAERS Safety Report 6837331-1 (Version None)
Quarter: 2010Q3

REPORT INFORMATION
  Report Type: 
  Country: None (occurrence: None)
  Receive Date: 20100713
  Receipt Date: 20070509
  Transmission Date: 20110219
  Serious: No
  Sender: FDA-Public Use
  Company Number: US-PFIZER INC-2007038463

PATIENT
  Sex: Female
  Weight: 74.84 kg

DRUGS (6)
  1. CHANTIX [Suspect]
     Indication: SMOKING CESSATION THERAPY
     Dates: start: 20070421, end: 20070422
  2. PROZAC [Concomitant]
  3. LOZOL [Concomitant]
  4. NORVASC [Concomitant]
  5. ATIVAN [Concomitant]
  6. PRILOSEC [Concomitant]

REACTIONS (3)
  - FEELING HOT [None]
  - HOSTILITY [None]
  - PAIN [None]
